FAERS Safety Report 5002438-0 (Version None)
Quarter: 2006Q2

REPORT INFORMATION
  Report Type: 
  Country: None (occurrence: None)
  Receive Date: 20060510
  Receipt Date: 20060503
  Transmission Date: 20061013
  Serious: Yes (Other)
  Sender: FDA-Public Use
  Company Number: 2006-DE-02224GD

PATIENT
  Age: 15 Year
  Sex: Female

DRUGS (6)
  1. PREDNISONE TAB [Suspect]
     Indication: THROMBOCYTOPENIA
     Dosage: 60 MG/D FOR 10 DAYS THEN WEANED
  2. FLUTICASONE/SALMETEROL (GALENIC/FLUTICASONE/SALMETEROL) [Suspect]
     Indication: ASTHMA
     Dosage: SEE IMAGE
  3. FLUTICASONE/SALMETEROL (GALENIC/FLUTICASONE/SALMETEROL) [Suspect]
     Indication: BRONCHIECTASIS
     Dosage: SEE IMAGE
  4. KALETRA [Suspect]
     Indication: HIV INFECTION
     Dosage: LOPINAVIR 798 MG/RITONAVIR 200 MG BID
  5. LAMIVUDINE [Concomitant]
  6. ABACAVIR [Concomitant]

REACTIONS (5)
  - CUSHING'S SYNDROME [None]
  - POLYURIA [None]
  - SECONDARY ADRENOCORTICAL INSUFFICIENCY [None]
  - TETANY [None]
  - WEIGHT INCREASED [None]
